FAERS Safety Report 20714306 (Version 2)
Quarter: 2022Q2

REPORT INFORMATION
  Report Type: Report from Study
  Country: US (occurrence: US)
  Receive Date: 20220415
  Receipt Date: 20220513
  Transmission Date: 20220721
  Serious: Yes (Hospitalization)
  Sender: FDA-Public Use
  Company Number: US-ALLERGAN-2212088US

PATIENT
  Sex: Female
  Weight: 54.422 kg

DRUGS (1)
  1. ATOGEPANT [Suspect]
     Active Substance: ATOGEPANT
     Indication: Migraine
     Dosage: UNK
     Dates: start: 202201

REACTIONS (6)
  - Hypertension [Unknown]
  - Cerebral cyst [Unknown]
  - Vision blurred [Unknown]
  - Headache [Unknown]
  - Migraine [Unknown]
  - Drug ineffective [Unknown]
